FAERS Safety Report 7412511-5 (Version None)
Quarter: 2011Q2

REPORT INFORMATION
  Report Type: 
  Country: None (occurrence: None)
  Receive Date: 20110413
  Receipt Date: 20110408
  Transmission Date: 20111010
  Serious: Yes (Death, Hospitalization)
  Sender: FDA-Public Use
  Company Number: IN-ELI_LILLY_AND_COMPANY-IN201104002270

PATIENT
  Age: 67 Year
  Sex: Female

DRUGS (1)
  1. XIGRIS [Suspect]
     Dosage: UNK, UNKNOWN
     Route: 065

REACTIONS (3)
  - MULTI-ORGAN FAILURE [None]
  - SEPSIS [None]
  - PLATELET COUNT DECREASED [None]
